FAERS Safety Report 12611297 (Version 1)
Quarter: 2016Q3

REPORT INFORMATION
  Report Type: Spontaneous
  Country: US (occurrence: US)
  Receive Date: 20160801
  Receipt Date: 20160801
  Transmission Date: 20161109
  Serious: No
  Sender: FDA-Public Use
  Company Number: US-BAUSCH-BL-2015-018882

PATIENT
  Sex: Male
  Weight: 143.01 kg

DRUGS (4)
  1. GLUMETZA [Suspect]
     Active Substance: METFORMIN HYDROCHLORIDE
     Indication: INSULIN RESISTANT DIABETES
     Route: 048
  2. METFORMIN [Suspect]
     Active Substance: METFORMIN HYDROCHLORIDE
     Indication: PRODUCT USED FOR UNKNOWN INDICATION
     Dosage: EVEN UP TO 2000 MG PER DAY
  3. TESTOSTERONE ENANTHATE OR CYPIONATE [Concomitant]
     Indication: HORMONE REPLACEMENT THERAPY
     Dates: start: 2008
  4. NORVASC [Concomitant]
     Active Substance: AMLODIPINE BESYLATE
     Indication: HYPERTENSION
     Route: 048
     Dates: end: 201507

REACTIONS (2)
  - Weight decreased [Recovering/Resolving]
  - Drug ineffective [Unknown]
